FAERS Safety Report 13113529 (Version 3)
Quarter: 2017Q1

REPORT INFORMATION
  Report Type: Spontaneous
  Country: US (occurrence: US)
  Receive Date: 20170113
  Receipt Date: 20170301
  Transmission Date: 20170428
  Serious: Yes (Other)
  Sender: FDA-Public Use
  Company Number: US-BAYER-2017-007166

PATIENT
  Age: 36 Year
  Sex: Female
  Weight: 112.93 kg

DRUGS (1)
  1. MIRENA [Suspect]
     Active Substance: LEVONORGESTREL
     Indication: CONTRACEPTION
     Dosage: 20 MCG/24HR, CONT
     Route: 015
     Dates: start: 20151102, end: 2017

REACTIONS (5)
  - Genital haemorrhage [None]
  - Abdominal pain lower [None]
  - Device expulsion [None]
  - Migraine [None]
  - Dysmenorrhoea [None]
